FAERS Safety Report 15977201 (Version 1)
Quarter: 2019Q1

REPORT INFORMATION
  Report Type: Spontaneous
  Country: US (occurrence: US)
  Receive Date: 20190218
  Receipt Date: 20190218
  Transmission Date: 20190418
  Serious: No
  Sender: FDA-Public Use
  Company Number: US-TEVA-2019-US-1009509

PATIENT
  Sex: Female

DRUGS (1)
  1. LESSINA [Suspect]
     Active Substance: ETHINYL ESTRADIOL\LEVONORGESTREL
     Indication: CONTRACEPTION
     Dosage: FORM STRENGTH: LEVONORGESTREL 0.1 MG/ AND ETHINYL ESTRADIOL 0.02 MG
     Route: 065
     Dates: start: 201812

REACTIONS (4)
  - Breast pain [Unknown]
  - Back pain [Unknown]
  - Product substitution issue [Unknown]
  - Mood altered [Unknown]

NARRATIVE: CASE EVENT DATE: 201812
